FAERS Safety Report 20500310 (Version 1)
Quarter: 2022Q1

REPORT INFORMATION
  Report Type: Spontaneous
  Country: US (occurrence: None)
  Receive Date: 20220218
  Receipt Date: 20220218
  Transmission Date: 20220423
  Serious: Yes (Hospitalization)
  Sender: FDA-Public Use
  Company Number: None

PATIENT
  Age: 55 Year
  Sex: Female

DRUGS (1)
  1. PROLIA [Suspect]
     Active Substance: DENOSUMAB
     Dosage: OTHER FREQUENCY : UNKNOWN;?
     Route: 058
     Dates: start: 20200220, end: 20210614

REACTIONS (7)
  - Tongue disorder [None]
  - Swollen tongue [None]
  - Obstructive airways disorder [None]
  - Oral pain [None]
  - Gingival pain [None]
  - Pain in jaw [None]
  - Dyspnoea [None]

NARRATIVE: CASE EVENT DATE: 20220218
